FAERS Safety Report 6597228-1 (Version None)
Quarter: 2010Q1

REPORT INFORMATION
  Report Type: 
  Country: None (occurrence: None)
  Receive Date: 20100219
  Receipt Date: 20100219
  Transmission Date: 20100710
  Serious: Yes (Hospitalization)
  Sender: FDA-Public Use
  Company Number: None

PATIENT
  Sex: Female
  Weight: 58.6 kg

DRUGS (8)
  1. 5 FU [Suspect]
     Indication: OESOPHAGEAL CARCINOMA
     Dosage: 2270MG CONT X7DAYS IV
     Route: 042
     Dates: start: 20100208
  2. CIPRO [Concomitant]
  3. FLAGYL [Concomitant]
  4. COMPAZINE [Concomitant]
  5. OXYCODONE [Concomitant]
  6. CHANTIX [Concomitant]
  7. EPIRUBICIN [Concomitant]
  8. OXALIPLATIN [Concomitant]

REACTIONS (6)
  - CONSTIPATION [None]
  - DISCOMFORT [None]
  - DRUG INEFFECTIVE [None]
  - INTESTINAL ISCHAEMIA [None]
  - LARGE INTESTINAL ULCER [None]
  - TREATMENT FAILURE [None]
